FAERS Safety Report 4657570-8 (Version None)
Quarter: 2005Q2

REPORT INFORMATION
  Report Type: 
  Country: None (occurrence: None)
  Receive Date: 20050405
  Receipt Date: 20050125
  Transmission Date: 20051028
  Serious: Yes (Hospitalization)
  Sender: FDA-Public Use
  Company Number: 2005020501

PATIENT
  Sex: Female

DRUGS (6)
  1. GEODON [Suspect]
     Indication: HALLUCINATION, AUDITORY
     Dosage: 80 MG (80 MG, 1 IN 1 D), ORAL
     Route: 048
     Dates: start: 20040701, end: 20050120
  2. GEODON [Suspect]
     Indication: SCHIZOPHRENIA
     Dosage: 80 MG (80 MG, 1 IN 1 D), ORAL
     Route: 048
     Dates: start: 20040701, end: 20050120
  3. BENADRYL [Suspect]
     Indication: SLEEP DISORDER
     Dosage: ORAL
     Route: 048
  4. ETHANOL [Concomitant]
  5. COCAINE [Concomitant]
  6. NAPROXEN [Concomitant]

REACTIONS (3)
  - DRUG INEFFECTIVE [None]
  - RECTAL HAEMORRHAGE [None]
  - SLEEP DISORDER [None]
